FAERS Safety Report 4516892-1 (Version None)
Quarter: 2004Q4

REPORT INFORMATION
  Report Type: 
  Country: None (occurrence: None)
  Receive Date: 20041202
  Receipt Date: 20041020
  Transmission Date: 20050328
  Serious: Yes (Hospitalization, Other)
  Sender: FDA-Public Use
  Company Number: US-BRISTOL-MYERS SQUIBB COMPANY-12746673

PATIENT
  Age: 16 Year
  Sex: Male
  Weight: 61 kg

DRUGS (3)
  1. VIDEX EC [Suspect]
     Indication: HIV INFECTION
     Route: 048
     Dates: start: 20021201
  2. SUSTIVA [Concomitant]
     Dosage: THERAPY WAS INITIATED IN 1999 AT 400 MG AND DOSAGE WAS INCREASED TO 600 MG IN 2001.
     Dates: start: 19990101
  3. EPIVIR [Concomitant]
     Dates: start: 19991201

REACTIONS (5)
  - ARTHRALGIA [None]
  - BLOOD ALKALINE PHOSPHATASE INCREASED [None]
  - HYPOCALCAEMIA [None]
  - PARAESTHESIA [None]
  - RICKETS [None]
